FAERS Safety Report 14101868 (Version 1)
Quarter: 2017Q4

REPORT INFORMATION
  Report Type: Spontaneous
  Country: JP (occurrence: JP)
  Receive Date: 20171018
  Receipt Date: 20171018
  Transmission Date: 20180321
  Serious: Yes (Other)
  Sender: FDA-Public Use
  Company Number: JP-UCBSA-2017039778

PATIENT
  Age: 78 Year
  Sex: Male

DRUGS (1)
  1. E KEPPRA [Suspect]
     Active Substance: LEVETIRACETAM
     Indication: PRODUCT USED FOR UNKNOWN INDICATION
     Dosage: 500 MG, 2X/DAY (BID)
     Route: 048
     Dates: end: 201709

REACTIONS (3)
  - Irregular sleep wake rhythm disorder [Recovered/Resolved]
  - Dyskinesia [Unknown]
  - Restlessness [Unknown]

NARRATIVE: CASE EVENT DATE: 20170918
